FAERS Safety Report 4387851-7 (Version None)
Quarter: 2004Q2

REPORT INFORMATION
  Report Type: 
  Country: None (occurrence: None)
  Receive Date: 20040630
  Receipt Date: 20040622
  Transmission Date: 20050107
  Serious: Yes (Other)
  Sender: FDA-Public Use
  Company Number: PHBS2004CA08327

PATIENT

DRUGS (2)
  1. CYCLOSPORINE [Suspect]
     Indication: RENAL TRANSPLANT
     Dosage: 4.6 MG/KG/D
     Route: 065
  2. SIROLIMUS [Suspect]
     Indication: RENAL TRANSPLANT
     Dosage: 0.03 MG/KG/D
     Route: 065

REACTIONS (4)
  - BLOOD CREATININE INCREASED [None]
  - GRAFT LOSS [None]
  - RENAL IMPAIRMENT [None]
  - THROMBOTIC MICROANGIOPATHY [None]
